FAERS Safety Report 16787888 (Version 1)
Quarter: 2019Q3

REPORT INFORMATION
  Report Type: Spontaneous
  Country: DE (occurrence: DE)
  Receive Date: 20190909
  Receipt Date: 20190909
  Transmission Date: 20191005
  Serious: Yes (Hospitalization)
  Sender: FDA-Public Use
  Company Number: DE-ELI_LILLY_AND_COMPANY-DE201908014340

PATIENT
  Age: 31 Year
  Sex: Male

DRUGS (1)
  1. LIPROLOG LISPRO [Suspect]
     Active Substance: INSULIN LISPRO
     Indication: TYPE 3 DIABETES MELLITUS
     Dosage: 60 INTERNATIONAL UNIT, UNKNOWN
     Route: 058
     Dates: start: 20190817, end: 20190817

REACTIONS (1)
  - Dyspnoea [Unknown]

NARRATIVE: CASE EVENT DATE: 20190817
